FAERS Safety Report 8049449-9 (Version None)
Quarter: 2012Q1

REPORT INFORMATION
  Report Type: 
  Country: None (occurrence: None)
  Receive Date: 20120117
  Receipt Date: 20120112
  Transmission Date: 20120608
  Serious: Yes (Other)
  Sender: FDA-Public Use
  Company Number: US-PFIZER INC-2012010906

PATIENT
  Sex: Female
  Weight: 68.027 kg

DRUGS (5)
  1. ADVIL COLD AND SINUS [Suspect]
     Indication: HEADACHE
  2. PLAQUENIL [Concomitant]
     Indication: SYSTEMIC LUPUS ERYTHEMATOSUS
     Dosage: UNK
  3. ADVIL COLD AND SINUS [Suspect]
     Indication: NASOPHARYNGITIS
     Dosage: UNK
     Dates: start: 20120110
  4. LEVOTHYROXINE [Concomitant]
     Indication: HYPERTHYROIDISM
     Dosage: 100 UG, UNK
  5. ADVIL COLD AND SINUS [Suspect]
     Indication: NASAL CONGESTION

REACTIONS (4)
  - DRUG DEPENDENCE [None]
  - PAIN [None]
  - HEADACHE [None]
  - TREMOR [None]
